FAERS Safety Report 26100253 (Version 1)
Quarter: 2025Q4

REPORT INFORMATION
  Report Type: Report from Study
  Country: US (occurrence: US)
  Receive Date: 20251128
  Receipt Date: 20251128
  Transmission Date: 20260117
  Serious: Yes (Other)
  Sender: ABBVIE
  Company Number: US-ABBVIE-6565585

PATIENT
  Age: 53 Year
  Sex: Female

DRUGS (2)
  1. HUMIRA [Suspect]
     Active Substance: ADALIMUMAB
     Indication: Rheumatoid arthritis
     Route: 058
     Dates: start: 2017
  2. HUMIRA [Suspect]
     Active Substance: ADALIMUMAB
     Route: 058
     Dates: start: 20151126

REACTIONS (5)
  - Meningioma [Unknown]
  - Therapeutic product effect decreased [Recovering/Resolving]
  - Brain neoplasm [Unknown]
  - Spinal disorder [Unknown]
  - Pain [Unknown]

NARRATIVE: CASE EVENT DATE: 20190101
